FAERS Safety Report 21579688 (Version 1)
Quarter: 2022Q4

REPORT INFORMATION
  Report Type: Spontaneous
  Country: US (occurrence: None)
  Receive Date: 20221110
  Receipt Date: 20221110
  Transmission Date: 20230113
  Serious: Yes (Other)
  Sender: FDA-Public Use
  Company Number: None

PATIENT
  Age: 65 Year
  Sex: Male
  Weight: 92.25 kg

DRUGS (1)
  1. PRIVIGEN [Suspect]
     Active Substance: HUMAN IMMUNOGLOBULIN G
     Indication: Myasthenic syndrome
     Dosage: OTHER FREQUENCY : QD X 3 DAYS Q4WK;?
     Route: 042
     Dates: start: 20210616

REACTIONS (2)
  - Haematochezia [None]
  - Abdominal pain upper [None]

NARRATIVE: CASE EVENT DATE: 20221107
